FAERS Safety Report 12195140 (Version 1)
Quarter: 2016Q1

REPORT INFORMATION
  Report Type: Spontaneous
  Country: US (occurrence: US)
  Receive Date: 20160321
  Receipt Date: 20160321
  Transmission Date: 20160526
  Serious: Yes (Death)
  Sender: FDA-Public Use
  Company Number: US-BEH-2016060380

PATIENT
  Age: 34 Year
  Sex: Female

DRUGS (10)
  1. SULFADIAZINE. [Suspect]
     Active Substance: SULFADIAZINE
     Indication: ENCEPHALITIS
  2. PYRIMETHAMINE [Suspect]
     Active Substance: PYRIMETHAMINE
     Indication: TOXOPLASMOSIS
  3. PYRIMETHAMINE [Suspect]
     Active Substance: PYRIMETHAMINE
     Indication: ENCEPHALITIS
  4. AMPHOTERICIN B. [Suspect]
     Active Substance: AMPHOTERICIN B
     Indication: ASPERGILLUS INFECTION
  5. ETHAMBUTOL [Suspect]
     Active Substance: ETHAMBUTOL HYDROCHLORIDE
     Indication: ENCEPHALITIS
  6. SULFADIAZINE. [Suspect]
     Active Substance: SULFADIAZINE
     Indication: ENCEPHALITIS
  7. PYRAZINAMIDE. [Suspect]
     Active Substance: PYRAZINAMIDE
     Indication: ENCEPHALITIS
  8. ISONIAZID. [Suspect]
     Active Substance: ISONIAZID
     Indication: ENCEPHALITIS
  9. INTRAVENOUS IMMUNOGLOBULIN [Suspect]
     Active Substance: HUMAN IMMUNOGLOBULIN G
     Indication: ENCEPHALITIS
  10. RIFAMPIN. [Suspect]
     Active Substance: RIFAMPIN
     Indication: ENCEPHALITIS

REACTIONS (1)
  - Drug ineffective [Fatal]
